FAERS Safety Report 4680960-4 (Version None)
Quarter: 2005Q2

REPORT INFORMATION
  Report Type: 
  Country: None (occurrence: None)
  Receive Date: 20050601
  Receipt Date: 20050322
  Transmission Date: 20051028
  Serious: No
  Sender: FDA-Public Use
  Company Number: 10747

PATIENT
  Age: 74 Year
  Sex: Female

DRUGS (2)
  1. LEUCOVORIN CALCIUM [Suspect]
     Indication: COLON CANCER
     Dosage: 75 MG PO
     Route: 048
     Dates: start: 20040716, end: 20040818
  2. TEGAFUR URACIL [Suspect]
     Indication: COLON CANCER
     Dosage: 400 MG PO
     Route: 048
     Dates: start: 20040716, end: 20040818

REACTIONS (2)
  - MOUTH ULCERATION [None]
  - STOMATITIS [None]
